FAERS Safety Report 20904484 (Version 3)
Quarter: 2022Q4

REPORT INFORMATION
  Report Type: Spontaneous
  Country: CA (occurrence: CA)
  Receive Date: 20220602
  Receipt Date: 20221004
  Transmission Date: 20230113
  Serious: Yes (Hospitalization, Other)
  Sender: FDA-Public Use
  Company Number: CA-CELLTRION INC.-2022CA008306

PATIENT

DRUGS (3)
  1. INFLECTRA [Suspect]
     Active Substance: INFLIXIMAB-DYYB
     Indication: Cardiac sarcoidosis
     Dosage: 6 MG/KG OR 600 MGINDUCTION: 0,2,6 WEEKS MAINTAINCENCE: Q8 WEEKS
     Route: 042
     Dates: start: 20210823
  2. INFLECTRA [Suspect]
     Active Substance: INFLIXIMAB-DYYB
     Dosage: 6 MG/KG OR 600 MG INDUCTION: 0,2,6 WEEKS MAINTAINCENCE: Q8 WEEKS
     Route: 042
     Dates: start: 20220919
  3. METHOTREXATE [Concomitant]
     Active Substance: METHOTREXATE
     Dosage: UNK

REACTIONS (5)
  - Atrial fibrillation [Unknown]
  - Cardiac disorder [Unknown]
  - Complication associated with device [Unknown]
  - Cardioversion [Unknown]
  - Off label use [Unknown]

NARRATIVE: CASE EVENT DATE: 20220501
